FAERS Safety Report 19689580 (Version 2)
Quarter: 2021Q3

REPORT INFORMATION
  Report Type: Report from Study
  Country: US (occurrence: US)
  Receive Date: 20210811
  Receipt Date: 20210818
  Transmission Date: 20211014
  Serious: Yes (Hospitalization)
  Sender: FDA-Public Use
  Company Number: US-PRINSTON PHARMACEUTICAL INC.-2021PRN00293

PATIENT
  Age: 21 Year
  Sex: Female

DRUGS (19)
  1. ATORVASTATIN [Concomitant]
     Active Substance: ATORVASTATIN
  2. SPARSENTAN. [Suspect]
     Active Substance: SPARSENTAN
     Indication: GLOMERULOSCLEROSIS
     Dosage: 400 MG, 1X/DAY
     Route: 048
     Dates: start: 20210129
  3. SPARSENTAN. [Suspect]
     Active Substance: SPARSENTAN
     Dosage: 400 MG, 1X/DAY
     Route: 048
     Dates: start: 20201130, end: 20201229
  4. SPARSENTAN. [Suspect]
     Active Substance: SPARSENTAN
     Dosage: 800 MG, 1X/DAY
     Route: 048
     Dates: start: 20201230, end: 20210128
  5. ALBUTEROL. [Concomitant]
     Active Substance: ALBUTEROL
  6. CETIRIZINE [Concomitant]
     Active Substance: CETIRIZINE HYDROCHLORIDE
  7. IRBESARTAN. [Suspect]
     Active Substance: IRBESARTAN
     Dosage: 150 MG, 1X/DAY
     Route: 048
     Dates: start: 20201130, end: 20201229
  8. PHENERGAN [Concomitant]
     Active Substance: PROMETHAZINE HYDROCHLORIDE
  9. ELIQUIS [Concomitant]
     Active Substance: APIXABAN
  10. IRBESARTAN. [Suspect]
     Active Substance: IRBESARTAN
     Dosage: 300 MG, 1X/DAY
     Route: 048
     Dates: start: 20201230, end: 20210128
  11. LASIX [Concomitant]
     Active Substance: FUROSEMIDE
  12. FERROUS SULFATE. [Concomitant]
     Active Substance: FERROUS SULFATE
  13. FLOVENT HFA [Concomitant]
     Active Substance: FLUTICASONE PROPIONATE
  14. CLARITIN [Concomitant]
     Active Substance: LORATADINE
  15. MULTIVITAMIN [Concomitant]
     Active Substance: VITAMINS
  16. ZOFRAN [Concomitant]
     Active Substance: ONDANSETRON HYDROCHLORIDE
  17. IRBESARTAN. [Suspect]
     Active Substance: IRBESARTAN
     Indication: GLOMERULOSCLEROSIS
     Dosage: 150 MG, 1X/DAY
     Route: 048
     Dates: start: 20210129
  18. EMLA [Concomitant]
     Active Substance: LIDOCAINE\PRILOCAINE
  19. MICRONOR [Concomitant]
     Active Substance: NORETHINDRONE

REACTIONS (18)
  - Anaemia [Not Recovered/Not Resolved]
  - Hypotension [Recovered/Resolved]
  - Blood cholesterol increased [Not Recovered/Not Resolved]
  - Astigmatism [Unknown]
  - Haemoglobin decreased [Unknown]
  - Red blood cell count decreased [Unknown]
  - Sinusitis [Recovered/Resolved]
  - Blood albumin abnormal [Unknown]
  - Haematocrit decreased [Unknown]
  - Blindness [Recovered/Resolved]
  - Migraine [Recovered/Resolved]
  - Swelling of eyelid [Unknown]
  - Blood calcium decreased [Unknown]
  - Blood phosphorus increased [Unknown]
  - Abdominal pain [Unknown]
  - Urinary tract infection [Recovered/Resolved]
  - Protein total increased [Unknown]
  - Urine protein/creatinine ratio increased [Unknown]

NARRATIVE: CASE EVENT DATE: 20201210
